FAERS Safety Report 5944469-X (Version None)
Quarter: 2008Q4

REPORT INFORMATION
  Report Type: 
  Country: None (occurrence: None)
  Receive Date: 20081021
  Receipt Date: 20080505
  Transmission Date: 20090506
  Serious: Yes (Other)
  Sender: FDA-Public Use
  Company Number: HQWYE008417JUL06

PATIENT
  Age: 73 Year
  Sex: Female

DRUGS (6)
  1. PREMARIN [Suspect]
     Indication: MENOPAUSAL SYMPTOMS
  2. DEPO-TESTADIOL [Suspect]
  3. ESTRATEST [Suspect]
     Indication: MENOPAUSAL SYMPTOMS
  4. ESTROGENS (ESTROGENS, ) [Suspect]
     Indication: MENOPAUSAL SYMPTOMS
  5. PROGESTERONE [Suspect]
  6. PROVERA [Suspect]
     Indication: MENOPAUSAL SYMPTOMS

REACTIONS (1)
  - OVARIAN CANCER [None]
